FAERS Safety Report 9658048 (Version 1)
Quarter: 2013Q4

REPORT INFORMATION
  Report Type: Spontaneous
  Country: FR (occurrence: FR)
  Receive Date: 20131030
  Receipt Date: 20131030
  Transmission Date: 20140711
  Serious: Yes (Death, Hospitalization)
  Sender: FDA-Public Use
  Company Number: FR-SA-200811277FR

PATIENT
  Age: 55 Year
  Sex: Female

DRUGS (6)
  1. FLAGYL [Suspect]
     Indication: PRODUCT USED FOR UNKNOWN INDICATION
     Route: 042
     Dates: start: 20080227, end: 20080305
  2. EVOLTRA [Suspect]
     Indication: ACUTE MYELOID LEUKAEMIA
     Route: 042
     Dates: start: 20080301, end: 20080304
  3. CYTARABINE [Suspect]
     Indication: MYELOID LEUKAEMIA
     Route: 042
     Dates: start: 20080229, end: 20080304
  4. VANCOMYCINE [Suspect]
     Indication: PRODUCT USED FOR UNKNOWN INDICATION
     Route: 042
     Dates: start: 20080223, end: 20080310
  5. IDARUBICIN [Concomitant]
     Indication: ACUTE MYELOID LEUKAEMIA
     Dates: start: 200802, end: 200802
  6. ARACYTINE [Concomitant]
     Indication: ACUTE MYELOID LEUKAEMIA
     Dates: start: 200802, end: 200802

REACTIONS (6)
  - Shock [Fatal]
  - Rash [Not Recovered/Not Resolved]
  - Dermatitis exfoliative [Not Recovered/Not Resolved]
  - Blister [Not Recovered/Not Resolved]
  - Renal failure acute [Not Recovered/Not Resolved]
  - Condition aggravated [Not Recovered/Not Resolved]
